FAERS Safety Report 4396974-8 (Version None)
Quarter: 2004Q2

REPORT INFORMATION
  Report Type: 
  Country: None (occurrence: None)
  Receive Date: 20040621
  Receipt Date: 20031223
  Transmission Date: 20050107
  Serious: Yes (Death)
  Sender: FDA-Public Use
  Company Number: USA-2003-0012253

PATIENT
  Age: 87 Year
  Sex: Female
  Weight: 60.3 kg

DRUGS (5)
  1. OXYCODONE HCL [Suspect]
     Dosage: UNK UNK, UNK; UNKNOWN
     Route: 065
  2. OXYMORPHONE HYDROCHLORIDE [Suspect]
     Dosage: UNK UNK, UNK; UNKNOWN
     Route: 065
  3. LORAZEPAM [Suspect]
     Dosage: UNK UNK, UNK; UNKNOWN
     Route: 065
  4. ETHANOL (ETHANOL) [Suspect]
     Dosage: UNK UNK, UNK; UNKNOWN
     Route: 065
  5. AMITRIPTYLINE HCL [Suspect]
     Dosage: UNK UNK, UNK; UNKNOWN
     Route: 065

REACTIONS (2)
  - ACCIDENTAL OVERDOSE [None]
  - MULTIPLE DRUG OVERDOSE [None]
